FAERS Safety Report 4784150-6 (Version None)
Quarter: 2005Q3

REPORT INFORMATION
  Report Type: 
  Country: None (occurrence: None)
  Receive Date: 20050930
  Receipt Date: 20050728
  Transmission Date: 20060218
  Serious: No
  Sender: FDA-Public Use
  Company Number: US-GLAXOSMITHKLINE-A0568097A

PATIENT
  Age: 64 Year
  Sex: Female

DRUGS (9)
  1. FLOVENT [Suspect]
     Indication: ASTHMA
     Dosage: 2PUFF TWICE PER DAY
     Route: 055
     Dates: start: 20050724
  2. COLCHICINE [Concomitant]
  3. LASIX [Concomitant]
  4. POTASSIUM [Concomitant]
  5. MAGNESIUM [Concomitant]
  6. THYROID TAB [Concomitant]
  7. HYZAAR [Concomitant]
  8. LABETALOL [Concomitant]
  9. PROTONIX [Concomitant]

REACTIONS (2)
  - BUCCAL MUCOSAL ROUGHENING [None]
  - DYSGEUSIA [None]
